FAERS Safety Report 9184945 (Version 1)
Quarter: 2013Q1

REPORT INFORMATION
  Report Type: Report from Study
  Country: IL (occurrence: IL)
  Receive Date: 20130325
  Receipt Date: 20130325
  Transmission Date: 20140127
  Serious: Yes (Other)
  Sender: FDA-Public Use
  Company Number: IL-ROCHE-1203819

PATIENT
  Age: 51 Year
  Sex: Male

DRUGS (3)
  1. MABTHERA [Suspect]
     Indication: MANTLE CELL LYMPHOMA
     Route: 065
  2. BENDAMUSTINE [Concomitant]
     Indication: MANTLE CELL LYMPHOMA
     Route: 065
  3. BORTEZOMIB [Concomitant]
     Indication: MANTLE CELL LYMPHOMA
     Route: 065

REACTIONS (1)
  - Haematotoxicity [Unknown]
